FAERS Safety Report 22180526 (Version 1)
Quarter: 2023Q2

REPORT INFORMATION
  Report Type: Spontaneous
  Country: US (occurrence: None)
  Receive Date: 20230405
  Receipt Date: 20230405
  Transmission Date: 20230722
  Serious: Yes (Hospitalization)
  Sender: FDA-Public Use
  Company Number: None

PATIENT
  Age: 51 Year
  Sex: Male

DRUGS (9)
  1. AMBRISENTAN [Suspect]
     Active Substance: AMBRISENTAN
     Indication: Pulmonary hypertension
     Dosage: FREQUENCY : DAILY;?
     Route: 048
     Dates: start: 20230104
  2. TADALAFIL [Concomitant]
     Active Substance: TADALAFIL
  3. ALBUTEROL SULFATE [Concomitant]
     Active Substance: ALBUTEROL SULFATE
  4. FUROSEMIDE [Concomitant]
  5. silver sulfadiazine top cream [Concomitant]
  6. GLIPIZIDE [Concomitant]
     Active Substance: GLIPIZIDE
  7. GABAPENTIN [Concomitant]
  8. METFORMIN [Concomitant]
  9. NPH humulin [Concomitant]

REACTIONS (2)
  - Peripheral swelling [None]
  - Acute respiratory failure [None]

NARRATIVE: CASE EVENT DATE: 20230403
